FAERS Safety Report 15669560 (Version 1)
Quarter: 2018Q4

REPORT INFORMATION
  Report Type: Report from Study
  Country: DE (occurrence: DE)
  Receive Date: 20181129
  Receipt Date: 20181129
  Transmission Date: 20190205
  Serious: Yes (Life-Threatening, Hospitalization, Other)
  Sender: FDA-Public Use
  Company Number: DE-PURDUE PHARMA-GBR-2018-0061925

PATIENT
  Age: 56 Year
  Sex: Male

DRUGS (8)
  1. TAMSULOSIN [Concomitant]
     Active Substance: TAMSULOSIN
     Indication: BENIGN PROSTATIC HYPERPLASIA
     Dosage: 0.4 MG, DAILY
     Route: 048
  2. IDEOS [Concomitant]
     Active Substance: CALCIUM CARBONATE\CHOLECALCIFEROL
     Dosage: 500 MG, DAILY
     Route: 048
  3. FOLIC ACID. [Concomitant]
     Active Substance: FOLIC ACID
     Indication: NON-SMALL CELL LUNG CANCER
     Dosage: 1 DF, DAILY
     Route: 048
  4. NOVAMINSULFON [Concomitant]
     Active Substance: METAMIZOLE
     Indication: BACK PAIN
     Dosage: 4 G, [EVERY 4 DAYS]
     Route: 048
     Dates: start: 20181022
  5. NOVAMINSULFON [Concomitant]
     Active Substance: METAMIZOLE
     Dosage: 3000 MG, Q3D
     Route: 048
     Dates: end: 20181021
  6. TORASEMID [Concomitant]
     Active Substance: TORSEMIDE
     Indication: NON-SMALL CELL LUNG CANCER
     Dosage: 20 MG, QOD
     Route: 048
  7. MORPHINE SULFATE. [Suspect]
     Active Substance: MORPHINE SULFATE
     Indication: BACK PAIN
     Dosage: 80 MG, EVERY 4 DAYS
     Route: 048
     Dates: start: 20181022
  8. MORPHINE SULFATE. [Suspect]
     Active Substance: MORPHINE SULFATE
     Dosage: 60 MG, Q3D
     Route: 048
     Dates: start: 2017, end: 20181021

REACTIONS (4)
  - Suicide attempt [Unknown]
  - Metastases to central nervous system [Not Recovered/Not Resolved]
  - Somnolence [Not Recovered/Not Resolved]
  - Hepatic enzyme increased [Not Recovered/Not Resolved]

NARRATIVE: CASE EVENT DATE: 20181030
